FAERS Safety Report 7331024-2 (Version None)
Quarter: 2011Q1

REPORT INFORMATION
  Report Type: 
  Country: None (occurrence: None)
  Receive Date: 20110304
  Receipt Date: 20110217
  Transmission Date: 20110831
  Serious: Yes (Death, Hospitalization)
  Sender: FDA-Public Use
  Company Number: US-CELGENEUS-163-21880-11012979

PATIENT
  Sex: Female
  Weight: 50.1 kg

DRUGS (54)
  1. REVLIMID [Suspect]
     Dosage: 50 MILLIGRAM
     Route: 048
     Dates: start: 20101229, end: 20110118
  2. RED BLOOD CELLS [Concomitant]
     Dosage: 2 UNITS
     Route: 051
  3. PLATELETS [Concomitant]
     Dosage: 1 UNIT
     Route: 051
  4. PROZAC [Concomitant]
     Dosage: 10 MILLIGRAM
     Route: 048
  5. ACETAMINOPHEN [Concomitant]
     Indication: HEADACHE
     Dosage: 650 MILLIGRAM
     Route: 048
     Dates: start: 20110101
  6. DUONEB [Concomitant]
     Dosage: 2 PUFFS
     Route: 055
  7. DOCUSATE [Concomitant]
     Route: 048
     Dates: start: 20110101
  8. PROZAC [Concomitant]
     Indication: DEPRESSION
     Dosage: 20 MILLIGRAM
     Route: 048
  9. MIRTAZAPINE [Concomitant]
     Dosage: 22.5 MILLIGRAM
     Route: 048
  10. PROCHLORPERAZINE [Concomitant]
     Dosage: 10 MILLIGRAM
     Route: 048
     Dates: start: 20110101
  11. METOCLOPRAMIDE [Concomitant]
     Dosage: 10-20MG
     Route: 048
     Dates: start: 20110101
  12. METOCLOPRAMIDE [Concomitant]
     Dosage: 10-20MG
     Route: 051
     Dates: start: 20110101
  13. OXYCODONE-ACETAMINOPHEN [Concomitant]
     Dosage: 1 TABLET
     Route: 048
  14. RIFABUTIN [Concomitant]
     Dosage: 150 MILLIGRAM
     Route: 048
  15. ETHAMBUTOL HYDROCHLORIDE [Concomitant]
     Dosage: 400 MILLIGRAM
     Route: 048
  16. KLONAZEPAM [Concomitant]
     Dosage: .5 MILLIGRAM
     Route: 048
  17. TRAZODONE HCL [Concomitant]
     Dosage: 200 MILLIGRAM
     Route: 048
  18. CALCIUM CARBONATE -VITAMIN D [Concomitant]
     Dosage: 500-200MG, 2 TABLETS
     Route: 048
  19. DUONEB [Concomitant]
     Dosage: 3 MILLILITER
     Route: 055
     Dates: start: 20110101
  20. ITRACONAZOLE [Concomitant]
     Dosage: 200 MILLIGRAM
     Route: 048
     Dates: start: 20110101
  21. ONDANSETRON [Concomitant]
     Dosage: 8 MILLIGRAM
     Route: 048
     Dates: start: 20110101
  22. LORAZEPAM [Concomitant]
     Dosage: .5 MILLIGRAM
     Route: 048
     Dates: start: 20110101
  23. MAGNESIUM [Concomitant]
     Dosage: 84 MILLIGRAM
     Route: 048
  24. AZITHROMYCIN [Concomitant]
     Dosage: 500 MILLIGRAM
     Route: 048
  25. MYCELEX [Concomitant]
     Dosage: 10 MILLIGRAM
     Route: 048
  26. MODAFINIL [Concomitant]
     Route: 048
     Dates: start: 20110101
  27. CYTARABINE [Concomitant]
     Dosage: 200 MILLIGRAM/SQ. METER
     Route: 051
     Dates: start: 20110101
  28. PROCHLORPERAZINE [Concomitant]
     Dosage: 10 MILLIGRAM
     Route: 051
     Dates: start: 20110101
  29. POSACONAZOLE [Concomitant]
     Dosage: 200 MILLIGRAM
     Route: 048
  30. CALCIUM GLUCONATE [Concomitant]
     Dosage: 4.6-9.2MEQ
  31. REVLIMID [Suspect]
     Dosage: 50 MILLIGRAM
     Route: 048
     Dates: start: 20100602, end: 20100622
  32. HYDROMORPHONE [Concomitant]
     Dosage: 2MG/ML, 0.5 MG
     Route: 051
     Dates: start: 20110101
  33. MORPHINE [Concomitant]
     Dosage: 2 MILLIGRAM
     Route: 051
  34. TRAMADOL HCL [Concomitant]
     Dosage: 25 MILLIGRAM
     Route: 048
     Dates: start: 20110101
  35. MIRTAZAPINE [Concomitant]
     Indication: DEPRESSION
     Dosage: 15 MILLIGRAM
     Route: 048
     Dates: start: 20110101
  36. DECADRON [Concomitant]
     Dosage: 10 MILLIGRAM
     Route: 051
     Dates: start: 20110101
  37. VIDAZA [Suspect]
     Dosage: 75 MILLIGRAM/SQ. METER
     Route: 051
     Dates: start: 20101222, end: 20101228
  38. VORICONAZOLE [Concomitant]
     Dosage: 300 MILLIGRAM
     Route: 048
  39. VORICONAZOLE [Concomitant]
     Dosage: 250 MILLIGRAM
     Route: 048
  40. HYDROCODONE-ACETAMINOPHEN [Concomitant]
     Dosage: 5-500MG, 1-2 TABLETS
     Route: 048
     Dates: start: 20110101
  41. SENNA [Concomitant]
     Dosage: 2 TABLET
     Route: 048
     Dates: start: 20110101
  42. ERGOCALCIFEROL [Concomitant]
     Dosage: 50000UNITS
     Route: 048
     Dates: start: 20110101
  43. VIDAZA [Suspect]
     Dosage: 75 MILLIGRAM/SQ. METER
     Route: 051
     Dates: start: 20100526, end: 20100601
  44. TRAZODONE HCL [Concomitant]
     Dosage: 100 MILLIGRAM
     Route: 048
     Dates: start: 20110101
  45. HYDROMORPHONE [Concomitant]
     Dosage: 0.5-1MG
     Route: 051
  46. CEPACOL [Concomitant]
     Dosage: 1 LOZENGE
     Route: 048
  47. NEURONTIN [Concomitant]
     Dosage: 600 MILLIGRAM
     Route: 048
  48. LEVOFLOXACIN [Concomitant]
     Dosage: 750 MILLIGRAM
     Route: 051
     Dates: start: 20110122
  49. LEVOFLOXACIN [Concomitant]
     Dosage: 750 MILLIGRAM
     Route: 048
  50. PANTOPRAZOLE [Concomitant]
     Dosage: 40 MILLIGRAM
     Route: 048
  51. HYDROCODONE-ACETAMINOPHEN [Concomitant]
     Dosage: 5-500MG, 1-2 TABLETS
     Route: 048
  52. LIDODERM [Concomitant]
     Dosage: 1 -2 PATCHES
     Route: 062
     Dates: start: 20110101
  53. LORAZEPAM [Concomitant]
     Dosage: .5 MILLIGRAM
     Route: 051
     Dates: start: 20110101
  54. ENALAPRIL MALEATE [Concomitant]
     Dosage: 2.5 MILLIGRAM
     Route: 048

REACTIONS (4)
  - SEPSIS [None]
  - CIRCULATORY COLLAPSE [None]
  - ACUTE MYELOID LEUKAEMIA [None]
  - CHILLS [None]
